FAERS Safety Report 11785547 (Version 2)
Quarter: 2016Q1

REPORT INFORMATION
  Report Type: Spontaneous
  Country: PL (occurrence: PL)
  Receive Date: 20151130
  Receipt Date: 20160113
  Transmission Date: 20160525
  Serious: Yes (Death, Other)
  Sender: FDA-Public Use
  Company Number: PL-ASTELLAS-2015US044781

PATIENT
  Sex: Female

DRUGS (1)
  1. TARCEVA [Suspect]
     Active Substance: ERLOTINIB HYDROCHLORIDE
     Indication: NON-SMALL CELL LUNG CANCER
     Dosage: UNK, UNKNOWN FREQ.
     Route: 065

REACTIONS (2)
  - Metastases to liver [Unknown]
  - Small cell lung cancer [Unknown]

NARRATIVE: CASE EVENT DATE: 201406
